FAERS Safety Report 5868542-X (Version None)
Quarter: 2008Q3

REPORT INFORMATION
  Report Type: 
  Country: None (occurrence: None)
  Receive Date: 20080903
  Receipt Date: 20080825
  Transmission Date: 20090109
  Serious: Yes (Hospitalization, Other)
  Sender: FDA-Public Use
  Company Number: US-CELGENEUS-163-21880-08081314

PATIENT
  Sex: Male
  Weight: 65 kg

DRUGS (1)
  1. REVLIMID [Suspect]
     Indication: MULTIPLE MYELOMA
     Route: 048
     Dates: start: 20080709

REACTIONS (4)
  - BALANCE DISORDER [None]
  - FALL [None]
  - FRACTURE [None]
  - PAIN [None]
